FAERS Safety Report 10161620 (Version 1)
Quarter: 2014Q2

REPORT INFORMATION
  Report Type: Spontaneous
  Country: US (occurrence: US)
  Receive Date: 20140509
  Receipt Date: 20140509
  Transmission Date: 20141212
  Serious: Yes (Hospitalization)
  Sender: FDA-Public Use
  Company Number: US-SUN PHARMACEUTICAL INDUSTRIES LTD-2014SUN00974

PATIENT
  Age: 51 Year
  Sex: Male

DRUGS (1)
  1. LITHIUM CARBONATE [Suspect]
     Indication: PRODUCT USED FOR UNKNOWN INDICATION
     Dosage: 300 MG, TEN TABLETS
     Route: 065

REACTIONS (9)
  - Electrocardiogram abnormal [Recovered/Resolved]
  - Chest pain [Unknown]
  - Gait disturbance [Unknown]
  - Confusional state [Recovering/Resolving]
  - Dysarthria [Recovering/Resolving]
  - Nausea [Unknown]
  - Vomiting [Unknown]
  - Diarrhoea [Unknown]
  - Overdose [Unknown]
